FAERS Safety Report 25913024 (Version 3)
Quarter: 2025Q4

REPORT INFORMATION
  Report Type: Spontaneous
  Country: US (occurrence: US)
  Receive Date: 20251013
  Receipt Date: 20251221
  Transmission Date: 20260118
  Serious: No
  Sender: SUNOVION
  Company Number: US-SMPA-2025SPA012395

PATIENT
  Age: 75 Year
  Sex: Male

DRUGS (22)
  1. ORGOVYX [Suspect]
     Active Substance: RELUGOLIX
     Indication: Prostate cancer
     Dosage: 360 MG, SINGLE
     Route: 048
     Dates: start: 202506, end: 202506
  2. ORGOVYX [Suspect]
     Active Substance: RELUGOLIX
     Dosage: 120 MG, QD
     Route: 048
     Dates: start: 202506
  3. AMLODIPINE [Concomitant]
     Active Substance: AMLODIPINE BESYLATE
  4. ASPIRIN [Concomitant]
     Active Substance: ASPIRIN
  5. ATORVASTATIN [Concomitant]
     Active Substance: ATORVASTATIN
  6. AZO URINARY PAIN RELIEF [Concomitant]
     Active Substance: PHENAZOPYRIDINE HYDROCHLORIDE
  7. CEPHALEXIN [Concomitant]
     Active Substance: CEPHALEXIN
  8. FISH OIL [Concomitant]
     Active Substance: FISH OIL
  9. GAS X PREVENTION [Concomitant]
  10. HYDROCHLOROTHIAZIDE [Concomitant]
     Active Substance: HYDROCHLOROTHIAZIDE
  11. MILK OF MAGNESIA [Concomitant]
     Active Substance: MAGNESIUM HYDROXIDE
  12. NITROUS OXIDE [Concomitant]
     Active Substance: NITROUS OXIDE
  13. OFLOXACIN [Concomitant]
     Active Substance: OFLOXACIN
  14. One a day men^s 50 plus [Concomitant]
  15. PREDNISOLONE ACETATE [Concomitant]
     Active Substance: PREDNISOLONE ACETATE
     Route: 047
  16. SILDENAFIL CITRATE [Concomitant]
     Active Substance: SILDENAFIL CITRATE
  17. SULFAMETHOXAZOLE AND TRIMETHOPRIM [Concomitant]
     Active Substance: SULFAMETHOXAZOLE\TRIMETHOPRIM
  18. TRAZODONE [Concomitant]
     Active Substance: TRAZODONE HYDROCHLORIDE
  19. VALSARTAN [Concomitant]
     Active Substance: VALSARTAN
  20. Artificial tears [Concomitant]
  21. JOJOBA [Concomitant]
     Active Substance: JOJOBA OIL
  22. PILOCARPINE [Concomitant]
     Active Substance: PILOCARPINE
     Route: 047

REACTIONS (5)
  - Hot flush [Unknown]
  - Fatigue [Unknown]
  - Memory impairment [Unknown]
  - Pruritus [Unknown]
  - Product dose omission issue [Recovered/Resolved]
